FAERS Safety Report 10008121 (Version 2)
Quarter: 2014Q1

REPORT INFORMATION
  Report Type: Spontaneous
  Country: US (occurrence: US)
  Receive Date: 20140313
  Receipt Date: 20140313
  Transmission Date: 20141002
  Serious: No
  Sender: FDA-Public Use
  Company Number: US-GILEAD-2013-0071206

PATIENT
  Sex: Female

DRUGS (3)
  1. LETAIRIS [Suspect]
     Indication: UNEVALUABLE EVENT
     Dosage: 10 MG, QD
     Dates: start: 20120902
  2. LETAIRIS [Suspect]
     Indication: UNEVALUABLE EVENT
     Dosage: UNK
     Dates: start: 20121127
  3. LETAIRIS [Suspect]
     Indication: HYPERTENSION

REACTIONS (4)
  - Chest pain [Unknown]
  - Hypotension [Unknown]
  - Oedema [Unknown]
  - Local swelling [Unknown]
